FAERS Safety Report 9272831 (Version 9)
Quarter: 2015Q4

REPORT INFORMATION
  Report Type: Report from Study
  Country: US (occurrence: US)
  Receive Date: 20130506
  Receipt Date: 20151012
  Transmission Date: 20160305
  Serious: Yes (Hospitalization, Other)
  Sender: FDA-Public Use
  Company Number: US-ALEXION-A201300639

PATIENT

DRUGS (3)
  1. SOLIRIS [Suspect]
     Active Substance: ECULIZUMAB
     Indication: HAEMOLYTIC URAEMIC SYNDROME
     Dosage: 600 MG, QW
     Route: 042
     Dates: start: 20111019, end: 20150506
  2. SOLIRIS [Suspect]
     Active Substance: ECULIZUMAB
     Dosage: EVERY 3 WEEK
     Route: 042
  3. SOLIRIS [Suspect]
     Active Substance: ECULIZUMAB
     Dosage: UNK
     Route: 042
     Dates: start: 20150513

REACTIONS (13)
  - Lymphoproliferative disorder [Not Recovered/Not Resolved]
  - Immunosuppression [Unknown]
  - Pneumonia mycoplasmal [Recovered/Resolved]
  - Haemolytic uraemic syndrome [Unknown]
  - Unevaluable event [Not Recovered/Not Resolved]
  - Renal transplant [Unknown]
  - Abdominal pain [Unknown]
  - Neoplasm malignant [Recovering/Resolving]
  - Renal failure [Recovered/Resolved]
  - Pyrexia [Unknown]
  - Adverse drug reaction [Unknown]
  - Condition aggravated [Unknown]
  - Headache [Unknown]

NARRATIVE: CASE EVENT DATE: 20120917
